FAERS Safety Report 12577330 (Version 4)
Quarter: 2016Q3

REPORT INFORMATION
  Report Type: Report from Study
  Country: TW (occurrence: TW)
  Receive Date: 20160720
  Receipt Date: 20160826
  Transmission Date: 20161109
  Serious: Yes (Hospitalization)
  Sender: FDA-Public Use
  Company Number: TW-ABBVIE-16K-153-1677464-00

PATIENT
  Age: 69 Year
  Sex: Female
  Weight: 45.4 kg

DRUGS (2)
  1. HUMIRA [Suspect]
     Active Substance: ADALIMUMAB
     Indication: RHEUMATOID ARTHRITIS
     Route: 058
     Dates: start: 20150105, end: 20160613
  2. LEUPROLIDE [Concomitant]
     Active Substance: LEUPROLIDE
     Indication: PRODUCT USED FOR UNKNOWN INDICATION

REACTIONS (15)
  - Spinal osteoarthritis [Unknown]
  - Pulmonary mass [Unknown]
  - Pyrexia [Unknown]
  - Splenomegaly [Not Recovered/Not Resolved]
  - Splenic necrosis [Not Recovered/Not Resolved]
  - Exostosis [Unknown]
  - Atrial fibrillation [Unknown]
  - Abdominal pain [Not Recovered/Not Resolved]
  - Pneumonia [Unknown]
  - Bundle branch block left [Unknown]
  - Aortic arteriosclerosis [Unknown]
  - Pneumonia klebsiella [Unknown]
  - Splenic infection [Not Recovered/Not Resolved]
  - Cardiomegaly [Unknown]
  - Pleural effusion [Unknown]

NARRATIVE: CASE EVENT DATE: 2016
